FAERS Safety Report 5445177-4 (Version None)
Quarter: 2007Q3

REPORT INFORMATION
  Report Type: 
  Country: None (occurrence: None)
  Receive Date: 20070730
  Receipt Date: 20070418
  Transmission Date: 20080115
  Serious: Yes (Hospitalization)
  Sender: FDA-Public Use
  Company Number: 240169

PATIENT
  Age: 80 Year
  Sex: Male

DRUGS (4)
  1. RITUXAN [Suspect]
     Indication: RHEUMATOID ARTHRITIS
     Dates: start: 20070320
  2. TYLENOL (CAPLET) [Suspect]
     Indication: RHEUMATOID ARTHRITIS
     Dates: start: 20070320
  3. COUMADIN [Concomitant]
  4. SEDATIVE (UNK INGREDIENTS)(SEDATIVE NOS) [Suspect]
     Indication: RHEUMATOID ARTHRITIS
     Dates: start: 20070320

REACTIONS (1)
  - CYSTITIS [None]
